APPROVED DRUG PRODUCT: DIAZEPAM
Active Ingredient: DIAZEPAM
Strength: 5MG/5ML
Dosage Form/Route: SOLUTION;ORAL
Application: A206477 | Product #001 | TE Code: AA
Applicant: CHARTWELL MOLECULAR HOLDINGS LLC
Approved: Jun 24, 2016 | RLD: No | RS: No | Type: RX